FAERS Safety Report 8421054-1 (Version None)
Quarter: 2012Q2

REPORT INFORMATION
  Report Type: 
  Country: None (occurrence: None)
  Receive Date: 20120608
  Receipt Date: 20120522
  Transmission Date: 20120825
  Serious: Yes (Other)
  Sender: FDA-Public Use
  Company Number: BR-US-EMD SERONO, INC.-7063942

PATIENT
  Sex: Female

DRUGS (12)
  1. PONDERA [Concomitant]
     Indication: PRODUCT USED FOR UNKNOWN INDICATION
  2. LEXOTAN [Concomitant]
     Indication: PRODUCT USED FOR UNKNOWN INDICATION
  3. FLUOXETINE [Concomitant]
     Indication: PRODUCT USED FOR UNKNOWN INDICATION
  4. ATENOLOL [Concomitant]
     Indication: PRODUCT USED FOR UNKNOWN INDICATION
  5. OMEPRAZOLE [Concomitant]
     Indication: PRODUCT USED FOR UNKNOWN INDICATION
  6. MEFENAMIC ACID [Concomitant]
     Indication: PRODUCT USED FOR UNKNOWN INDICATION
  7. SERTRALINE HYDROCHLORIDE [Concomitant]
     Indication: PRODUCT USED FOR UNKNOWN INDICATION
  8. DORFLEX [Concomitant]
     Indication: PRODUCT USED FOR UNKNOWN INDICATION
  9. TEGRETOL-XR [Concomitant]
     Indication: PRODUCT USED FOR UNKNOWN INDICATION
  10. CAPTOPRIL [Concomitant]
     Indication: PRODUCT USED FOR UNKNOWN INDICATION
  11. ANGELIQ [Concomitant]
     Indication: HORMONE THERAPY
  12. REBIF [Suspect]
     Indication: RELAPSING-REMITTING MULTIPLE SCLEROSIS
     Dates: start: 20081226

REACTIONS (14)
  - ANXIETY [None]
  - MEMORY IMPAIRMENT [None]
  - ASPARTATE AMINOTRANSFERASE INCREASED [None]
  - INTERVERTEBRAL DISC PROTRUSION [None]
  - MUSCLE FATIGUE [None]
  - DEPRESSED MOOD [None]
  - GAMMA-GLUTAMYLTRANSFERASE INCREASED [None]
  - INJECTION SITE NODULE [None]
  - LORDOSIS [None]
  - SERUM FERRITIN INCREASED [None]
  - HEPATOMEGALY [None]
  - INJECTION SITE ERYTHEMA [None]
  - INJECTION SITE PRURITUS [None]
  - ALANINE AMINOTRANSFERASE INCREASED [None]
